FAERS Safety Report 11421780 (Version 1)
Quarter: 2015Q3

REPORT INFORMATION
  Report Type: Spontaneous
  Country: US (occurrence: US)
  Receive Date: 20150827
  Receipt Date: 20150827
  Transmission Date: 20151125
  Serious: Yes (Hospitalization)
  Sender: FDA-Public Use
  Company Number: US-ASTRAZENECA-2015SE81042

PATIENT
  Age: 76 Year
  Sex: Male
  Weight: 72.6 kg

DRUGS (5)
  1. NEXIUM [Suspect]
     Active Substance: ESOMEPRAZOLE MAGNESIUM
     Indication: GASTROOESOPHAGEAL REFLUX DISEASE
     Dosage: 40 MG DAILY (GENERIC TEVA)
     Route: 048
     Dates: start: 20150806, end: 20150817
  2. LISINOPRIL. [Suspect]
     Active Substance: LISINOPRIL
     Indication: HYPERTENSION
     Route: 048
     Dates: start: 2008
  3. NEXIUM [Suspect]
     Active Substance: ESOMEPRAZOLE MAGNESIUM
     Indication: GASTROOESOPHAGEAL REFLUX DISEASE
     Route: 048
     Dates: end: 20150805
  4. SIMVASTATIN. [Concomitant]
     Active Substance: SIMVASTATIN
     Indication: BLOOD CHOLESTEROL ABNORMAL
     Route: 048
  5. NEXIUM [Suspect]
     Active Substance: ESOMEPRAZOLE MAGNESIUM
     Indication: GASTROOESOPHAGEAL REFLUX DISEASE
     Dosage: 40 MG TWO TIMES A DAY (GENERIC)
     Route: 048
     Dates: start: 20150818

REACTIONS (6)
  - Nocturia [Unknown]
  - Hypertension [Unknown]
  - Oesophageal spasm [Unknown]
  - Gastritis [Unknown]
  - Prostatomegaly [Unknown]
  - Helicobacter infection [Unknown]

NARRATIVE: CASE EVENT DATE: 2008
